FAERS Safety Report 6932023-2 (Version None)
Quarter: 2010Q3

REPORT INFORMATION
  Report Type: 
  Country: None (occurrence: None)
  Receive Date: 20100812
  Receipt Date: 20090102
  Transmission Date: 20110219
  Serious: No
  Sender: FDA-Public Use
  Company Number: 2009-01021

PATIENT
  Sex: Male

DRUGS (1)
  1. ZICAM EXTREME CONGESTION RELIEF [Suspect]
     Dosage: QD X 1 MONTH
     Dates: start: 20081231, end: 20090102

REACTIONS (2)
  - AGEUSIA [None]
  - ANOSMIA [None]
